FAERS Safety Report 20579117 (Version 1)
Quarter: 2022Q1

REPORT INFORMATION
  Report Type: Spontaneous
  Country: US (occurrence: None)
  Receive Date: 20220310
  Receipt Date: 20220310
  Transmission Date: 20220423
  Serious: Yes (Hospitalization)
  Sender: FDA-Public Use
  Company Number: None

PATIENT
  Age: 86 Year
  Sex: Male

DRUGS (1)
  1. WARFARIN SODIUM [Suspect]
     Active Substance: WARFARIN SODIUM
     Indication: Deep vein thrombosis
     Dates: start: 20140314, end: 20200229

REACTIONS (5)
  - Chronic gastritis [None]
  - Duodenal ulcer [None]
  - Anaemia [None]
  - Deep vein thrombosis [None]
  - Gastric haemorrhage [None]

NARRATIVE: CASE EVENT DATE: 20200229
